FAERS Safety Report 6762950-0 (Version None)
Quarter: 2010Q2

REPORT INFORMATION
  Report Type: 
  Country: None (occurrence: None)
  Receive Date: 20100609
  Receipt Date: 20100531
  Transmission Date: 20101027
  Serious: Yes (Other)
  Sender: FDA-Public Use
  Company Number: US-PFIZER INC-2010053693

PATIENT
  Age: 60 Year
  Sex: Male
  Weight: 90.703 kg

DRUGS (1)
  1. TOVIAZ [Suspect]
     Indication: CONFUSIONAL STATE
     Dosage: 4 MG, 1X/DAY
     Dates: start: 20100401

REACTIONS (2)
  - CONFUSIONAL STATE [None]
  - VISION BLURRED [None]
